FAERS Safety Report 17538624 (Version 1)
Quarter: 2020Q1

REPORT INFORMATION
  Report Type: Spontaneous
  Country: US (occurrence: US)
  Receive Date: 20200313
  Receipt Date: 20200313
  Transmission Date: 20200409
  Serious: Yes (Congenital Anomaly)
  Sender: FDA-Public Use
  Company Number: None

PATIENT
  Age: 55 Year
  Sex: Female
  Weight: 56.25 kg

DRUGS (3)
  1. VITAMINSLIFEPAK NANO BY NUSKIN [Concomitant]
  2. PICATO [Suspect]
     Active Substance: INGENOL MEBUTATE
     Indication: ACTINIC KERATOSIS
     Dosage: ?          OTHER FREQUENCY:USE ONCE FOR 2 DAY;?
     Route: 061
     Dates: start: 20200307, end: 20200308
  3. ANTIBIOTICS [Concomitant]
     Active Substance: UNSPECIFIED INGREDIENT

REACTIONS (5)
  - Blister rupture [None]
  - Purulent discharge [None]
  - Staphylococcal infection [None]
  - Product label confusion [None]
  - Impaired healing [None]

NARRATIVE: CASE EVENT DATE: 20200313
